FAERS Safety Report 9481628 (Version 1)
Quarter: 2013Q3

REPORT INFORMATION
  Report Type: Spontaneous
  Country: CA (occurrence: CA)
  Receive Date: 20130828
  Receipt Date: 20130828
  Transmission Date: 20140515
  Serious: Yes (Other)
  Sender: FDA-Public Use
  Company Number: CA-AMGEN-KDL185159

PATIENT
  Age: 47 Year
  Sex: Female

DRUGS (1)
  1. ENBREL [Suspect]
     Indication: PSORIATIC ARTHROPATHY
     Dosage: 50 MG, 2 TIMES/WK
     Route: 058
     Dates: start: 20060219, end: 20060626

REACTIONS (5)
  - Systemic lupus erythematosus rash [Unknown]
  - Psoriasis [Unknown]
  - Pain of skin [Unknown]
  - Skin atrophy [Unknown]
  - Photosensitivity reaction [Unknown]
